FAERS Safety Report 23576700 (Version 1)
Quarter: 2024Q1

REPORT INFORMATION
  Report Type: Spontaneous
  Country: US (occurrence: None)
  Receive Date: 20240228
  Receipt Date: 20240228
  Transmission Date: 20240410
  Serious: Yes (Other)
  Sender: FDA-Public Use
  Company Number: None

PATIENT
  Age: 37 Year
  Sex: Female
  Weight: 63 kg

DRUGS (3)
  1. BUPROPION HYDROCHLORIDE [Suspect]
     Active Substance: BUPROPION HYDROCHLORIDE
     Indication: Attention deficit hyperactivity disorder
     Dosage: 1 TABLET ORAL
     Route: 048
     Dates: start: 20231012, end: 20231117
  2. MIRENA [Concomitant]
     Active Substance: LEVONORGESTREL
  3. VITAMINS [Concomitant]
     Active Substance: VITAMINS

REACTIONS (6)
  - Loss of consciousness [None]
  - Alcohol use [None]
  - Vomiting [None]
  - Fear [None]
  - Product label issue [None]
  - Alcohol interaction [None]

NARRATIVE: CASE EVENT DATE: 20231116
